FAERS Safety Report 6680128-6 (Version None)
Quarter: 2010Q2

REPORT INFORMATION
  Report Type: 
  Country: None (occurrence: None)
  Receive Date: 20100413
  Receipt Date: 20100317
  Transmission Date: 20101027
  Serious: Yes (Death, Hospitalization)
  Sender: FDA-Public Use
  Company Number: US-BAXTER-2010BH002723

PATIENT
  Age: 58 Year
  Sex: Female

DRUGS (6)
  1. HEPARIN SODIUM INJECTION [Suspect]
     Indication: THROMBOSIS
     Route: 065
     Dates: start: 20071101
  2. HEPARIN SODIUM INJECTION [Suspect]
     Indication: DIALYSIS
     Route: 065
     Dates: start: 20071101
  3. HEPARIN SODIUM INJECTION [Suspect]
     Indication: PROPHYLAXIS
     Route: 065
     Dates: start: 20071101
  4. HEPARIN SODIUM INJECTION [Suspect]
     Route: 065
     Dates: start: 20080101
  5. HEPARIN SODIUM INJECTION [Suspect]
     Route: 065
     Dates: start: 20080101
  6. HEPARIN SODIUM INJECTION [Suspect]
     Route: 065
     Dates: start: 20080101

REACTIONS (5)
  - OEDEMA PERIPHERAL [None]
  - PHARYNGEAL OEDEMA [None]
  - RENAL FAILURE ACUTE [None]
  - SEPTIC SHOCK [None]
  - URINE OUTPUT DECREASED [None]
